FAERS Safety Report 21743803 (Version 2)
Quarter: 2022Q4

REPORT INFORMATION
  Report Type: Report from Study
  Country: US (occurrence: US)
  Receive Date: 20221217
  Receipt Date: 20221221
  Transmission Date: 20230113
  Serious: No
  Sender: FDA-Public Use
  Company Number: US-ABBVIE-22K-163-4325806-00

PATIENT
  Age: 48 Year
  Sex: Female

DRUGS (6)
  1. HUMIRA [Suspect]
     Active Substance: ADALIMUMAB
     Indication: Colitis ulcerative
     Dosage: DAY 29, STRENGTH:40MG?40MG/0.4ML PEN
     Route: 058
     Dates: start: 20210525
  2. HUMIRA [Suspect]
     Active Substance: ADALIMUMAB
     Dosage: STRENGTH:40MG
     Route: 058
     Dates: start: 20211104, end: 2022
  3. HUMIRA [Suspect]
     Active Substance: ADALIMUMAB
     Dosage: STRENGTH:40MG
     Route: 058
  4. MODERNA COVID-19 VACCINE [Concomitant]
     Active Substance: ELASOMERAN
     Indication: COVID-19 immunisation
     Dosage: 1ST DOSE/1 IN ONCE
     Route: 030
     Dates: start: 2021, end: 2021
  5. MODERNA COVID-19 VACCINE [Concomitant]
     Active Substance: ELASOMERAN
     Indication: COVID-19 immunisation
     Dosage: 2ND DOSE/1 IN ONCE
     Route: 030
     Dates: start: 2021, end: 2021
  6. MODERNA COVID-19 VACCINE [Concomitant]
     Active Substance: ELASOMERAN
     Indication: COVID-19 immunisation
     Dosage: 3RD DOSE/1 IN ONCE
     Route: 030
     Dates: start: 2021, end: 2021

REACTIONS (21)
  - Illness [Unknown]
  - Food allergy [Unknown]
  - Therapeutic response shortened [Recovering/Resolving]
  - Loss of personal independence in daily activities [Not Recovered/Not Resolved]
  - Muscle tightness [Recovering/Resolving]
  - Off label use [Unknown]
  - Night sweats [Recovering/Resolving]
  - Family stress [Unknown]
  - Gastrointestinal disorder [Unknown]
  - Insomnia [Not Recovered/Not Resolved]
  - Decreased appetite [Not Recovered/Not Resolved]
  - Depressed mood [Not Recovered/Not Resolved]
  - Pain in extremity [Unknown]
  - COVID-19 [Unknown]
  - Gastrointestinal pain [Unknown]
  - Injection site reaction [Recovering/Resolving]
  - Unevaluable event [Unknown]
  - Colitis ulcerative [Unknown]
  - Inflammation [Unknown]
  - Constipation [Unknown]
  - Abdominal distension [Unknown]

NARRATIVE: CASE EVENT DATE: 20220520
